FAERS Safety Report 8821492 (Version 1)
Quarter: 2012Q4

REPORT INFORMATION
  Report Type: 
  Country: FR (occurrence: FR)
  Receive Date: 20121002
  Receipt Date: 20121002
  Transmission Date: 20130627
  Serious: Yes (Death, Other)
  Sender: FDA-Public Use
  Company Number: FR-ELI_LILLY_AND_COMPANY-FR201209005695

PATIENT
  Age: 40 Year
  Sex: Male

DRUGS (1)
  1. ZYPREXA [Suspect]
     Route: 048

REACTIONS (2)
  - Death [Fatal]
  - Electrocardiogram QT prolonged [Unknown]
